FAERS Safety Report 18508789 (Version 4)
Quarter: 2021Q1

REPORT INFORMATION
  Report Type: Spontaneous
  Country: DE (occurrence: DE)
  Receive Date: 20201117
  Receipt Date: 20210222
  Transmission Date: 20210419
  Serious: Yes (Other)
  Sender: FDA-Public Use
  Company Number: DE-BIOGEN-2020BI00945125

PATIENT
  Age: 33 Year
  Sex: Female

DRUGS (5)
  1. UTROGEST [Concomitant]
     Active Substance: PROGESTERONE
     Indication: ASSISTED FERTILISATION
     Route: 065
  2. CLOMIFEN [Concomitant]
     Active Substance: CLOMIPHENE
     Indication: ASSISTED FERTILISATION
     Route: 065
  3. TYSABRI [Suspect]
     Active Substance: NATALIZUMAB
     Route: 065
     Dates: start: 20080715, end: 20130225
  4. FOLIC ACID. [Concomitant]
     Active Substance: FOLIC ACID
     Indication: ASSISTED FERTILISATION
     Route: 065
  5. TYSABRI [Suspect]
     Active Substance: NATALIZUMAB
     Indication: RELAPSING-REMITTING MULTIPLE SCLEROSIS
     Route: 042

REACTIONS (2)
  - Abortion spontaneous [Recovered/Resolved]
  - Maternal exposure during pregnancy [Recovered/Resolved]

NARRATIVE: CASE EVENT DATE: 20130320
